FAERS Safety Report 15267837 (Version 1)
Quarter: 2018Q3

REPORT INFORMATION
  Report Type: Spontaneous
  Country: US (occurrence: US)
  Receive Date: 20180811
  Receipt Date: 20180811
  Transmission Date: 20181010
  Serious: Yes (Other)
  Sender: FDA-Public Use
  Company Number: US-AMGEN-USASP2018107874

PATIENT
  Age: 68 Year
  Sex: Female

DRUGS (1)
  1. PROLIA [Suspect]
     Active Substance: DENOSUMAB
     Indication: OSTEOPOROSIS POSTMENOPAUSAL
     Dosage: 60 MG, Q6MO
     Route: 065
     Dates: start: 2017

REACTIONS (7)
  - Discomfort [Unknown]
  - Tooth disorder [Recovering/Resolving]
  - Pelvic discomfort [Unknown]
  - Glaucoma [Unknown]
  - Arthritis [Unknown]
  - Sinus disorder [Unknown]
  - Spinal pain [Unknown]

NARRATIVE: CASE EVENT DATE: 2018
